FAERS Safety Report 24389000 (Version 1)
Quarter: 2024Q4

REPORT INFORMATION
  Report Type: Spontaneous
  Country: US (occurrence: US)
  Receive Date: 20241002
  Receipt Date: 20241002
  Transmission Date: 20250115
  Serious: No
  Sender: TEVA
  Company Number: US-TEVA-VS-3244460

PATIENT

DRUGS (2)
  1. COPAXONE [Suspect]
     Active Substance: GLATIRAMER ACETATE
     Indication: Product used for unknown indication
     Route: 065
  2. KESIMPTA [Concomitant]
     Active Substance: OFATUMUMAB

REACTIONS (5)
  - Injection site swelling [Unknown]
  - Feeling abnormal [Unknown]
  - Injection site urticaria [Unknown]
  - Injection site erythema [Unknown]
  - Injection site pain [Unknown]
